FAERS Safety Report 4866353-5 (Version None)
Quarter: 2005Q4

REPORT INFORMATION
  Report Type: 
  Country: None (occurrence: None)
  Receive Date: 20051221
  Receipt Date: 20051205
  Transmission Date: 20060501
  Serious: Yes (Hospitalization)
  Sender: FDA-Public Use
  Company Number: CIO05019805

PATIENT
  Age: 54 Year
  Sex: Male
  Weight: 68 kg

DRUGS (4)
  1. PEPTO-BISMOL VERSION UNKNOWN, ORIGINAL FLAVOR (BISMUTH SUBSALICYLATE 2 [Suspect]
     Indication: DYSPEPSIA
     Dosage: 1 DOSE, EVENING, ORAL; 1 DOSE, 2/DAY, ORAL
     Route: 048
     Dates: start: 20050805, end: 20050805
  2. PEPTO-BISMOL VERSION UNKNOWN, ORIGINAL FLAVOR (BISMUTH SUBSALICYLATE 2 [Suspect]
     Indication: DYSPEPSIA
     Dosage: 1 DOSE, EVENING, ORAL; 1 DOSE, 2/DAY, ORAL
     Route: 048
     Dates: start: 20050806, end: 20050806
  3. NITROGLYCERIN   A.L.   (GLYCERYL TRINITRATE) [Concomitant]
  4. ANTICOAGULANT [Concomitant]

REACTIONS (4)
  - CHEST PAIN [None]
  - DYSPEPSIA [None]
  - MYOCARDIAL INFARCTION [None]
  - TINNITUS [None]
